FAERS Safety Report 8620600-2 (Version None)
Quarter: 2012Q3

REPORT INFORMATION
  Report Type: 
  Country: None (occurrence: None)
  Receive Date: 20120816
  Receipt Date: 20120816
  Transmission Date: 20120928
  Serious: Yes (Hospitalization)
  Sender: FDA-Public Use
  Company Number: None

PATIENT
  Sex: Male
  Weight: 76 kg

DRUGS (1)
  1. AFINITOR [Suspect]

REACTIONS (6)
  - VOMITING [None]
  - ABDOMINAL ABSCESS [None]
  - DYSPNOEA [None]
  - FLUID OVERLOAD [None]
  - PYREXIA [None]
  - HYPOXIA [None]
